FAERS Safety Report 7640108-0 (Version None)
Quarter: 2011Q3

REPORT INFORMATION
  Report Type: 
  Country: None (occurrence: None)
  Receive Date: 20110728
  Receipt Date: 20110713
  Transmission Date: 20111222
  Serious: Yes (Death, Hospitalization, Other)
  Sender: FDA-Public Use
  Company Number: US-BAYER-200917686GPV

PATIENT
  Age: 48 Year
  Sex: Female
  Weight: 55.5 kg

DRUGS (1)
  1. TYLENOL PM [Suspect]
     Indication: PRODUCT USED FOR UNKNOWN INDICATION
     Dosage: 150 TABLETS, TOTAL ACETAMINOPHEN DOSE OF 1,351 MG/KG AND DIPHENHYDRAMINE 68 MG/KG
     Route: 048

REACTIONS (15)
  - HYPOTENSION [None]
  - DIFFUSE ALVEOLAR DAMAGE [None]
  - MYDRIASIS [None]
  - UPPER GASTROINTESTINAL HAEMORRHAGE [None]
  - MENTAL IMPAIRMENT [None]
  - HEPATIC FAILURE [None]
  - TACHYCARDIA [None]
  - RENAL TUBULAR NECROSIS [None]
  - BRONCHOPNEUMONIA [None]
  - RESPIRATORY FAILURE [None]
  - HEPATOTOXICITY [None]
  - HEPATIC NECROSIS [None]
  - ANALGESIC DRUG LEVEL INCREASED [None]
  - CARDIAC ARREST [None]
  - ENCEPHALOPATHY [None]
